FAERS Safety Report 10216165 (Version 1)
Quarter: 2014Q2

REPORT INFORMATION
  Report Type: Spontaneous
  Country: PR (occurrence: None)
  Receive Date: 20140602
  Receipt Date: 20140602
  Transmission Date: 20141212
  Serious: Yes (Hospitalization)
  Sender: FDA-Public Use
  Company Number: 2014P1004439

PATIENT
  Age: 22 Year
  Sex: Female

DRUGS (1)
  1. SULFAMETHOXAZOLE AND TRIMETHOPRIM [Suspect]
     Indication: URINARY TRACT INFECTION
     Dosage: 2 DAYS
     Route: 048

REACTIONS (4)
  - Retinal haemorrhage [None]
  - Intermediate uveitis [None]
  - Drug reaction with eosinophilia and systemic symptoms [None]
  - Vitritis [None]
